FAERS Safety Report 5509780-5 (Version None)
Quarter: 2007Q4

REPORT INFORMATION
  Report Type: 
  Country: None (occurrence: None)
  Receive Date: 20071107
  Receipt Date: 20071107
  Transmission Date: 20080405
  Serious: Yes (Life-Threatening, Hospitalization)
  Sender: FDA-Public Use
  Company Number: None

PATIENT
  Age: 65 Year
  Sex: Male

DRUGS (1)
  1. DECITABINE [Suspect]
     Indication: MYELODYSPLASTIC SYNDROME
     Dosage: 38MG OTHER IV
     Route: 042
     Dates: start: 20070820, end: 20070824

REACTIONS (3)
  - HAEMORRHAGE [None]
  - LEUKOPENIA [None]
  - THROMBOCYTOPENIA [None]
